FAERS Safety Report 6771154-7 (Version None)
Quarter: 2010Q2

REPORT INFORMATION
  Report Type: 
  Country: None (occurrence: None)
  Receive Date: 20100616
  Receipt Date: 20100608
  Transmission Date: 20101027
  Serious: Yes (Other)
  Sender: FDA-Public Use
  Company Number: US-SOLVAY-00210003685

PATIENT
  Age: 627 Month
  Sex: Female
  Weight: 72.727 kg

DRUGS (1)
  1. PROMETRIUM [Suspect]
     Indication: AMENORRHOEA
     Dosage: DAILY DOSE: 400 MILLIGRAM(S)
     Route: 048
     Dates: start: 20090501, end: 20090501

REACTIONS (5)
  - DEPRESSION [None]
  - DIZZINESS [None]
  - DYSARTHRIA [None]
  - LOSS OF CONSCIOUSNESS [None]
  - NAUSEA [None]
